FAERS Safety Report 7749316-1 (Version None)
Quarter: 2011Q3

REPORT INFORMATION
  Report Type: 
  Country: None (occurrence: None)
  Receive Date: 20110914
  Receipt Date: 20100413
  Transmission Date: 20111222
  Serious: No
  Sender: FDA-Public Use
  Company Number: US-BAYER-201030231NA

PATIENT
  Age: 22 Year
  Sex: Male

DRUGS (2)
  1. MIRENA [Suspect]
     Dosage: 20 MCG/24HR, CONT
     Route: 015
     Dates: start: 20071001, end: 20080201
  2. MIRENA [Suspect]
     Indication: CONTRACEPTION
     Dosage: 20 MCG/24HR, CONT
     Route: 015
     Dates: start: 20090201

REACTIONS (9)
  - ABNORMAL WITHDRAWAL BLEEDING [None]
  - FATIGUE [None]
  - WEIGHT DECREASED [None]
  - BREAST ENLARGEMENT [None]
  - DECREASED APPETITE [None]
  - VAGINAL HAEMORRHAGE [None]
  - PAIN [None]
  - MOOD SWINGS [None]
  - PENILE PAIN [None]
